FAERS Safety Report 12070714 (Version 1)
Quarter: 2016Q1

REPORT INFORMATION
  Report Type: Spontaneous
  Country: US (occurrence: US)
  Receive Date: 20160211
  Receipt Date: 20160211
  Transmission Date: 20160526
  Serious: No
  Sender: FDA-Public Use
  Company Number: US-BIOGEN-2015BI099980

PATIENT
  Age: 52 Year
  Sex: Female

DRUGS (2)
  1. PLEGRIDY [Suspect]
     Active Substance: PEGINTERFERON BETA-1A
     Route: 065
     Dates: end: 20150727
  2. PLEGRIDY [Suspect]
     Active Substance: PEGINTERFERON BETA-1A
     Indication: MULTIPLE SCLEROSIS
     Route: 065
     Dates: start: 20150629

REACTIONS (18)
  - Paraesthesia [Unknown]
  - Abdominal discomfort [Recovered/Resolved]
  - Drug ineffective [Unknown]
  - Injection site inflammation [Unknown]
  - Muscle spasms [Recovered/Resolved]
  - Swollen tongue [Unknown]
  - Injection site pain [Recovered/Resolved]
  - Burning sensation [Not Recovered/Not Resolved]
  - Peripheral swelling [Recovered/Resolved]
  - Injection site bruising [Not Recovered/Not Resolved]
  - Multiple sclerosis [Unknown]
  - General symptom [Unknown]
  - Adverse reaction [Unknown]
  - Mental impairment [Recovered/Resolved]
  - Pain [Unknown]
  - Fear [Not Recovered/Not Resolved]
  - Injection site warmth [Recovered/Resolved]
  - Irritability [Unknown]

NARRATIVE: CASE EVENT DATE: 2015
